FAERS Safety Report 6811534-4 (Version None)
Quarter: 2010Q3

REPORT INFORMATION
  Report Type: 
  Country: None (occurrence: None)
  Receive Date: 20100701
  Receipt Date: 20100113
  Transmission Date: 20110219
  Serious: Yes (Other)
  Sender: FDA-Public Use
  Company Number: US-ASTRAZENECA-2009UW11759

PATIENT
  Sex: Male
  Weight: 117.9 kg

DRUGS (4)
  1. SEROQUEL [Suspect]
     Route: 048
     Dates: start: 20040101
  2. LOTREL [Concomitant]
     Dates: start: 20040101
  3. EFFEXOR [Concomitant]
     Dates: start: 20040101
  4. ULTRAM [Concomitant]
     Dates: start: 20040101

REACTIONS (2)
  - POLYNEUROPATHY [None]
  - TYPE 2 DIABETES MELLITUS [None]
